FAERS Safety Report 9547131 (Version 6)
Quarter: 2014Q3

REPORT INFORMATION
  Report Type: Report from Study
  Country: AU (occurrence: AU)
  Receive Date: 20130924
  Receipt Date: 20140727
  Transmission Date: 20150326
  Serious: Yes (Hospitalization, Other)
  Sender: FDA-Public Use
  Company Number: PHHY2013AU105773

PATIENT
  Age: 49 Year
  Sex: Female

DRUGS (11)
  1. THALLIUM [Concomitant]
     Active Substance: THALLIUM
     Dosage: UNK
  2. OLANZAPINE. [Concomitant]
     Active Substance: OLANZAPINE
     Dosage: 20 MG NOCTE
  3. CLOZARIL [Suspect]
     Active Substance: CLOZAPINE
     Dosage: UNK
     Route: 048
  4. BRONCHODILATORS [Concomitant]
     Active Substance: UNSPECIFIED INGREDIENT
  5. AMISULPRIDE [Concomitant]
     Active Substance: AMISULPRIDE
     Dosage: 400 MG, BID
     Route: 048
  6. ATORVASTATIN [Concomitant]
     Active Substance: ATORVASTATIN
     Dosage: 20 MG, QD (20 MG, NOCTE)
     Route: 048
  7. PALIPERIDONE [Concomitant]
     Active Substance: PALIPERIDONE
     Dosage: 150 MG (IMI 3/52)
  8. SERTRALINE [Concomitant]
     Active Substance: SERTRALINE HYDROCHLORIDE
     Dosage: 100 MG (MANE)
  9. CLOZARIL [Suspect]
     Active Substance: CLOZAPINE
     Dosage: 300 MG, NOCTE
     Route: 048
     Dates: start: 20130206, end: 20130828
  10. PERINDOPRIL [Concomitant]
     Active Substance: PERINDOPRIL
     Dosage: 2.5 MG, DAILY
     Route: 048
  11. VENTOLIN [Concomitant]
     Active Substance: ALBUTEROL SULFATE
     Dosage: 100 UG, Q4H
     Route: 055

REACTIONS (22)
  - Cardiac disorder [Unknown]
  - Electrocardiogram ST segment elevation [Unknown]
  - Mitral valve incompetence [Unknown]
  - Exercise tolerance decreased [Unknown]
  - C-reactive protein increased [Unknown]
  - Anion gap decreased [Unknown]
  - Blood phosphorus increased [Unknown]
  - Fatigue [Unknown]
  - Pyrexia [Unknown]
  - Myocardial infarction [Unknown]
  - Electrocardiogram T wave abnormal [Unknown]
  - Electrocardiogram QT prolonged [Unknown]
  - Angina unstable [Unknown]
  - Blood pressure increased [Unknown]
  - Computerised tomogram thorax abnormal [Unknown]
  - Ventricular hypokinesia [Unknown]
  - Chest pain [Recovering/Resolving]
  - Tachycardia [Unknown]
  - Schizophrenia, paranoid type [Not Recovered/Not Resolved]
  - Echocardiogram abnormal [Unknown]
  - Myocardial ischaemia [Unknown]
  - Pulmonary valve incompetence [Unknown]

NARRATIVE: CASE EVENT DATE: 20130215
